FAERS Safety Report 23845275 (Version 2)
Quarter: 2024Q2

REPORT INFORMATION
  Report Type: Spontaneous
  Country: FR (occurrence: FR)
  Receive Date: 20240511
  Receipt Date: 20240602
  Transmission Date: 20240716
  Serious: Yes (Hospitalization, Other)
  Sender: FDA-Public Use
  Company Number: FR-AFSSAPS-RS2024000404

PATIENT
  Age: 11 Year
  Sex: Male

DRUGS (11)
  1. PREDNISONE [Suspect]
     Active Substance: PREDNISONE
     Indication: Leprosy
     Dosage: UNK
     Route: 064
     Dates: start: 20110909, end: 20111110
  2. HYDROCORTISONE [Suspect]
     Active Substance: HYDROCORTISONE
     Indication: Leprosy
     Dosage: 20 MILLIGRAM, ONCE A DAY
     Route: 064
     Dates: start: 20111111, end: 20120427
  3. AMITRIPTYLINE HYDROCHLORIDE [Suspect]
     Active Substance: AMITRIPTYLINE HYDROCHLORIDE
     Indication: Leprosy
     Dosage: 50 DOSAGE FORM, ONCE A DAY
     Route: 064
     Dates: start: 20110909, end: 201112
  4. PLAQUENIL [Suspect]
     Active Substance: HYDROXYCHLOROQUINE SULFATE
     Indication: Leprosy
     Dosage: 200 MILLIGRAM, ONCE A DAY
     Route: 064
     Dates: start: 20110909, end: 20120106
  5. LYRICA [Suspect]
     Active Substance: PREGABALIN
     Indication: Leprosy
     Dosage: 150 MILLIGRAM, ONCE A DAY
     Route: 064
     Dates: start: 20110909, end: 201112
  6. ACTONEL [Suspect]
     Active Substance: RISEDRONATE SODIUM
     Indication: Product used for unknown indication
     Dosage: 35 MILLIGRAM, ONCE A DAY
     Route: 064
     Dates: start: 20110909, end: 20111118
  7. LAMPRENE [Suspect]
     Active Substance: CLOFAZIMINE
     Indication: Leprosy
     Dosage: 50 MILLIGRAM, ONCE A DAY
     Route: 064
     Dates: start: 20110909, end: 20120427
  8. CHOLECALCIFEROL [Suspect]
     Active Substance: CHOLECALCIFEROL
     Indication: Product used for unknown indication
     Dosage: UNK
     Route: 064
     Dates: start: 20110909, end: 20120106
  9. RIFAMPIN [Suspect]
     Active Substance: RIFAMPIN
     Indication: Leprosy
     Dosage: 600 MILLIGRAM, ONCE A DAY
     Route: 064
     Dates: start: 20110909, end: 20120427
  10. DAPSONE\FERROUS OXALATE [Suspect]
     Active Substance: DAPSONE\FERROUS OXALATE
     Indication: Leprosy
     Dosage: 100 MILLIGRAM, ONCE A DAY
     Route: 064
     Dates: start: 20110909, end: 20120427
  11. ESOMEPRAZOLE [Suspect]
     Active Substance: ESOMEPRAZOLE
     Indication: Product used for unknown indication
     Dosage: 20 MILLIGRAM, ONCE A DAY
     Route: 064
     Dates: start: 20110909, end: 201112

REACTIONS (7)
  - Foetal growth restriction [Recovered/Resolved]
  - Preterm premature rupture of membranes [Recovered/Resolved]
  - Autism spectrum disorder [Not Recovered/Not Resolved]
  - Maternal exposure during pregnancy [Recovered/Resolved]
  - Foetal exposure during pregnancy [Unknown]
  - Premature baby [Unknown]
  - Low birth weight baby [Unknown]
